FAERS Safety Report 9283026 (Version 1)
Quarter: 2013Q2

REPORT INFORMATION
  Report Type: Spontaneous
  Country: US (occurrence: US)
  Receive Date: 20130510
  Receipt Date: 20130510
  Transmission Date: 20140414
  Serious: No
  Sender: FDA-Public Use
  Company Number: US-GLAXOSMITHKLINE-A0973945A

PATIENT
  Age: 64 Year
  Sex: Female
  Weight: 55.5 kg

DRUGS (5)
  1. TYKERB [Suspect]
     Dosage: 4TAB AT NIGHT
     Route: 048
  2. HERCEPTIN [Concomitant]
  3. SYNTHROID [Concomitant]
  4. ASA [Concomitant]
  5. IMODIUM [Concomitant]

REACTIONS (7)
  - Diarrhoea [Not Recovered/Not Resolved]
  - Diarrhoea [Unknown]
  - Fatigue [Unknown]
  - Weight decreased [Unknown]
  - Dysuria [Unknown]
  - Constipation [Unknown]
  - Dyspnoea [Unknown]
